FAERS Safety Report 8591413-5 (Version None)
Quarter: 2012Q3

REPORT INFORMATION
  Report Type: 
  Country: None (occurrence: None)
  Receive Date: 20120801
  Receipt Date: 20120720
  Transmission Date: 20120928
  Serious: Yes (Hospitalization, Other)
  Sender: FDA-Public Use
  Company Number: ADR-2011-11747

PATIENT
  Sex: Male

DRUGS (2)
  1. BACLOFEN [Suspect]
     Indication: POST LAMINECTOMY SYNDROME
  2. BACLOFEN [Suspect]
     Indication: PAIN

REACTIONS (11)
  - HYPERHIDROSIS [None]
  - BACK PAIN [None]
  - MUSCLE SPASMS [None]
  - BREAKTHROUGH PAIN [None]
  - PLEURISY [None]
  - OEDEMA PERIPHERAL [None]
  - DRUG WITHDRAWAL SYNDROME [None]
  - NECK PAIN [None]
  - SCIATICA [None]
  - RESTLESS LEGS SYNDROME [None]
  - INADEQUATE ANALGESIA [None]
